FAERS Safety Report 8960909 (Version 1)
Quarter: 2012Q4

REPORT INFORMATION
  Report Type: 
  Country: US (occurrence: US)
  Receive Date: 20121213
  Receipt Date: 20121213
  Transmission Date: 20130627
  Serious: No
  Sender: FDA-Public Use
  Company Number: US-009507513-1212USA000544

PATIENT
  Age: 49 Year
  Sex: Male

DRUGS (5)
  1. PEGINTRON [Suspect]
     Indication: HEPATITIS C
  2. OXYCONTIN [Concomitant]
  3. REMERON [Concomitant]
  4. SEROQUEL [Concomitant]
  5. HYDROCODONE [Concomitant]

REACTIONS (4)
  - Pain in extremity [Unknown]
  - Pain in extremity [Unknown]
  - Musculoskeletal pain [Unknown]
  - Headache [Unknown]
